FAERS Safety Report 15413205 (Version 4)
Quarter: 2018Q4

REPORT INFORMATION
  Report Type: Spontaneous
  Country: VN (occurrence: VN)
  Receive Date: 20180921
  Receipt Date: 20181116
  Transmission Date: 20190204
  Serious: Yes (Life-Threatening, Hospitalization)
  Sender: FDA-Public Use
  Company Number: VN-SHIRE-VN201835860

PATIENT

DRUGS (1)
  1. HEMOFIL M [Suspect]
     Active Substance: ANTIHEMOPHILIC FACTOR HUMAN
     Indication: HAEMORRHAGE PROPHYLAXIS
     Dosage: 250 IU (250 IU (220-400 IU), POWDER FOR SOLUTION FOR INJECTION, 1 VIAL ONCE A DAY) 1XDAY:QD
     Route: 042

REACTIONS (2)
  - Hypersensitivity [Unknown]
  - Infusion related reaction [Recovering/Resolving]

NARRATIVE: CASE EVENT DATE: 20180912
